FAERS Safety Report 6463467-3 (Version None)
Quarter: 2009Q4

REPORT INFORMATION
  Report Type: 
  Country: None (occurrence: None)
  Receive Date: 20091201
  Receipt Date: 20091015
  Transmission Date: 20100525
  Serious: Yes (Hospitalization, Other)
  Sender: FDA-Public Use
  Company Number: US-AMGEN-QUU369418

PATIENT
  Sex: Male

DRUGS (3)
  1. ENBREL [Suspect]
     Indication: PSORIATIC ARTHROPATHY
     Route: 058
  2. ENBREL [Suspect]
     Indication: PSORIASIS
  3. METHOTREXATE [Concomitant]

REACTIONS (14)
  - DEPRESSION [None]
  - DIZZINESS [None]
  - FINGER DEFORMITY [None]
  - HERNIA [None]
  - INDURATION [None]
  - INJECTION SITE HAEMATOMA [None]
  - INJECTION SITE PAIN [None]
  - MEMORY IMPAIRMENT [None]
  - NAUSEA [None]
  - ONYCHOMYCOSIS [None]
  - PSORIASIS [None]
  - PSORIATIC ARTHROPATHY [None]
  - TREMOR [None]
  - VISION BLURRED [None]
